FAERS Safety Report 12758225 (Version 1)
Quarter: 2016Q3

REPORT INFORMATION
  Report Type: Spontaneous
  Country: US (occurrence: US)
  Receive Date: 20160919
  Receipt Date: 20160919
  Transmission Date: 20161109
  Serious: No
  Sender: FDA-Public Use
  Company Number: US-CHIESI USA INC-US-MDCO-15-00503

PATIENT
  Sex: Male

DRUGS (2)
  1. CLEVIPREX [Suspect]
     Active Substance: CLEVIDIPINE
  2. CLEVIPREX [Suspect]
     Active Substance: CLEVIDIPINE
     Indication: BLOOD PRESSURE MANAGEMENT
     Dosage: 1MG/HR

REACTIONS (2)
  - Drug dose titration not performed [Unknown]
  - Drug ineffective [Unknown]
